FAERS Safety Report 5829688-5 (Version None)
Quarter: 2008Q3

REPORT INFORMATION
  Report Type: 
  Country: None (occurrence: None)
  Receive Date: 20080730
  Receipt Date: 20080730
  Transmission Date: 20090109
  Serious: No
  Sender: FDA-Public Use
  Company Number: None

PATIENT
  Sex: Female
  Weight: 80.6496 kg

DRUGS (2)
  1. DILANTIN [Suspect]
     Indication: CONVULSION
     Dosage: TWO PO QD
     Route: 048
  2. TEGRETOL [Suspect]
     Dosage: TWO QAM TWO @ AFTERNOON THREE QHS

REACTIONS (3)
  - SLEEP DISORDER [None]
  - STOMACH DISCOMFORT [None]
  - WEIGHT DECREASED [None]
